FAERS Safety Report 17544745 (Version 2)
Quarter: 2020Q2

REPORT INFORMATION
  Report Type: Spontaneous
  Country: US (occurrence: US)
  Receive Date: 20200316
  Receipt Date: 20200428
  Transmission Date: 20200713
  Serious: No
  Sender: FDA-Public Use
  Company Number: US-PFIZER INC-2020113104

PATIENT
  Age: 81 Year
  Sex: Male

DRUGS (4)
  1. INLYTA [Suspect]
     Active Substance: AXITINIB
     Indication: RENAL CANCER
     Dosage: 5 MG, 2X/DAY
  2. INLYTA [Suspect]
     Active Substance: AXITINIB
     Indication: LUNG NEOPLASM MALIGNANT
  3. INLYTA [Suspect]
     Active Substance: AXITINIB
     Indication: ADRENAL NEOPLASM
     Dosage: 5 MG, 1X/DAY
  4. INLYTA [Suspect]
     Active Substance: AXITINIB
     Indication: LUNG NEOPLASM MALIGNANT

REACTIONS (3)
  - Speech disorder [Unknown]
  - Cognitive disorder [Unknown]
  - Movement disorder [Unknown]
